FAERS Safety Report 25186586 (Version 2)
Quarter: 2025Q2

REPORT INFORMATION
  Report Type: Report from Study
  Country: JP (occurrence: JP)
  Receive Date: 20250411
  Receipt Date: 20250626
  Transmission Date: 20250717
  Serious: Yes (Other)
  Sender: TAKEDA
  Company Number: JP-TAKEDA-2025TJP002956

PATIENT
  Sex: Female
  Weight: 41.9 kg

DRUGS (24)
  1. MARIBAVIR [Suspect]
     Active Substance: MARIBAVIR
     Indication: Cytomegalovirus infection
     Dates: start: 20241129, end: 20241213
  2. MARIBAVIR [Suspect]
     Active Substance: MARIBAVIR
     Dates: start: 20241225, end: 20250115
  3. MARIBAVIR [Suspect]
     Active Substance: MARIBAVIR
     Dates: start: 20250305, end: 20250313
  4. MARIBAVIR [Suspect]
     Active Substance: MARIBAVIR
     Dates: start: 20250403, end: 20250409
  5. TACROLIMUS [Suspect]
     Active Substance: TACROLIMUS
     Indication: Product used for unknown indication
  6. RITUXIMAB [Concomitant]
     Active Substance: RITUXIMAB
  7. REZUROCK [Concomitant]
     Active Substance: BELUMOSUDIL
  8. VIBEGRON [Concomitant]
     Active Substance: VIBEGRON
  9. PREDNISOLONE [Concomitant]
     Active Substance: PREDNISOLONE
  10. MIYA-BM [Concomitant]
     Active Substance: CLOSTRIDIUM BUTYRICUM SPORES STRAIN M-55
  11. ATOVAQUONE [Concomitant]
     Active Substance: ATOVAQUONE
  12. ETIZOLAM [Concomitant]
     Active Substance: ETIZOLAM
  13. FEXOFENADINE HYDROCHLORIDE [Concomitant]
     Active Substance: FEXOFENADINE HYDROCHLORIDE
  14. VONOPRAZAN FUMARATE [Concomitant]
     Active Substance: VONOPRAZAN FUMARATE
  15. ACYCLOVIR [Concomitant]
     Active Substance: ACYCLOVIR
  16. MONTELUKAST [Concomitant]
     Active Substance: MONTELUKAST
  17. ALENDRONATE [Concomitant]
     Active Substance: ALENDRONATE SODIUM
  18. IBUPROFEN [Concomitant]
     Active Substance: IBUPROFEN
  19. AMBISOME [Concomitant]
     Active Substance: AMPHOTERICIN B
  20. PRIMPERAN [Concomitant]
     Active Substance: METOCLOPRAMIDE HYDROCHLORIDE
  21. VYVGART [Concomitant]
     Active Substance: EFGARTIGIMOD ALFA-FCAB
  22. VANCOMYCIN [Concomitant]
     Active Substance: VANCOMYCIN
  23. RUXOLITINIB [Concomitant]
     Active Substance: RUXOLITINIB
  24. CRESEMBA [Concomitant]
     Active Substance: ISAVUCONAZONIUM SULFATE

REACTIONS (2)
  - Amylase increased [Recovering/Resolving]
  - Dysgeusia [Not Recovered/Not Resolved]

NARRATIVE: CASE EVENT DATE: 20241223
